FAERS Safety Report 7752144-4 (Version None)
Quarter: 2011Q3

REPORT INFORMATION
  Report Type: 
  Country: None (occurrence: None)
  Receive Date: 20110915
  Receipt Date: 20110912
  Transmission Date: 20111222
  Serious: Yes (Other)
  Sender: FDA-Public Use
  Company Number: US-PFIZER INC-2011166928

PATIENT
  Age: 65 Year
  Sex: Female

DRUGS (2)
  1. DILANTIN [Suspect]
     Indication: EPILEPSY
     Dosage: 100 MG AND 30 MG, UNK
  2. DILANTIN [Suspect]
     Indication: CONVULSION
     Dosage: 230 MG, UNK
     Route: 048

REACTIONS (1)
  - CONVULSION [None]
